FAERS Safety Report 9259654 (Version 1)
Quarter: 2013Q2

REPORT INFORMATION
  Report Type: Spontaneous
  Country: US (occurrence: US)
  Receive Date: 20130429
  Receipt Date: 20130429
  Transmission Date: 20140414
  Serious: Yes (Other)
  Sender: FDA-Public Use
  Company Number: US-BIOGENIDEC-2013BI037075

PATIENT
  Sex: Female

DRUGS (2)
  1. AVONEX [Suspect]
     Indication: MULTIPLE SCLEROSIS
     Route: 030
  2. STEROIDS [Concomitant]

REACTIONS (6)
  - Mastocytosis [Not Recovered/Not Resolved]
  - General symptom [Unknown]
  - Anaphylactic shock [Unknown]
  - Arrhythmia [Unknown]
  - Induration [Unknown]
  - Urticaria [Unknown]
